FAERS Safety Report 8341518-9 (Version None)
Quarter: 2012Q2

REPORT INFORMATION
  Report Type: 
  Country: None (occurrence: None)
  Receive Date: 20120507
  Receipt Date: 20100210
  Transmission Date: 20120825
  Serious: No
  Sender: FDA-Public Use
  Company Number: US-TEVA-2010000825

PATIENT
  Age: 85 Year
  Sex: Female

DRUGS (1)
  1. TREANDA [Suspect]
     Indication: NON-HODGKIN'S LYMPHOMA
     Route: 042
     Dates: start: 20090101

REACTIONS (4)
  - PRURITUS [None]
  - FATIGUE [None]
  - HYPERHIDROSIS [None]
  - CHILLS [None]
